FAERS Safety Report 7691268-7 (Version None)
Quarter: 2011Q3

REPORT INFORMATION
  Report Type: 
  Country: None (occurrence: None)
  Receive Date: 20110815
  Receipt Date: 20110803
  Transmission Date: 20111222
  Serious: Yes (Hospitalization, Other)
  Sender: FDA-Public Use
  Company Number: 120809

PATIENT
  Age: 27 Year
  Sex: Male

DRUGS (1)
  1. KETAMINE HCL [Suspect]
     Indication: PRODUCT USED FOR UNKNOWN INDICATION

REACTIONS (8)
  - POLLAKIURIA [None]
  - ABDOMINAL PAIN UPPER [None]
  - DRUG ABUSE [None]
  - NOCTURIA [None]
  - BILIARY TRACT DISORDER [None]
  - HAEMATURIA [None]
  - MEDICATION ERROR [None]
  - CHOLESTASIS [None]
